FAERS Safety Report 21293844 (Version 1)
Quarter: 2022Q3

REPORT INFORMATION
  Report Type: Spontaneous
  Country: US (occurrence: US)
  Receive Date: 20220905
  Receipt Date: 20220905
  Transmission Date: 20221027
  Serious: Yes (Hospitalization, Other)
  Sender: FDA-Public Use
  Company Number: US-drreddys-SPO/USA/22/0154172

PATIENT
  Age: 40 Year
  Sex: Male

DRUGS (6)
  1. DEXAMETHASONE SODIUM PHOSPHATE [Suspect]
     Active Substance: DEXAMETHASONE SODIUM PHOSPHATE
     Indication: COVID-19 pneumonia
  2. PREDNISONE [Suspect]
     Active Substance: PREDNISONE
     Indication: COVID-19 pneumonia
     Dosage: PROLONGED  TAPER
  3. REMDESIVIR [Concomitant]
     Active Substance: REMDESIVIR
     Indication: COVID-19 pneumonia
  4. LEVOFLOXACIN [Concomitant]
     Active Substance: LEVOFLOXACIN
     Indication: Superinfection
     Route: 048
  5. LEVOFLOXACIN [Concomitant]
     Active Substance: LEVOFLOXACIN
     Indication: Pneumonia bacterial
  6. BARICITINIB [Concomitant]
     Active Substance: BARICITINIB
     Indication: COVID-19 pneumonia

REACTIONS (1)
  - Pneumothorax spontaneous [Not Recovered/Not Resolved]
